FAERS Safety Report 6843891-7 (Version None)
Quarter: 2010Q3

REPORT INFORMATION
  Report Type: 
  Country: None (occurrence: None)
  Receive Date: 20100715
  Receipt Date: 20100702
  Transmission Date: 20110219
  Serious: Yes (Hospitalization, Other)
  Sender: FDA-Public Use
  Company Number: ES-WATSON-2010-09100

PATIENT
  Age: 31 Year
  Sex: Male

DRUGS (2)
  1. ALENDRONATE SODIUM (WATSON LABORATORIES) [Suspect]
     Indication: OSTEOGENESIS IMPERFECTA
     Dosage: 70 MG, 1/WEEK
     Route: 048
     Dates: start: 20080201
  2. ALENDRONATE SODIUM (WATSON LABORATORIES) [Suspect]
     Indication: BONE DENSITY DECREASED
     Dosage: 70 MG, 1/WEEK
     Route: 048
     Dates: start: 20000301, end: 20060801

REACTIONS (1)
  - JAW FRACTURE [None]
